FAERS Safety Report 17802006 (Version 1)
Quarter: 2020Q2

REPORT INFORMATION
  Report Type: Spontaneous
  Country: US (occurrence: US)
  Receive Date: 20200518
  Receipt Date: 20200518
  Transmission Date: 20200714
  Serious: Yes (Other)
  Sender: FDA-Public Use
  Company Number: None

PATIENT

DRUGS (1)
  1. METHAMPHETAMINE HYDROCHLORIDE TABLETS, USP [Suspect]
     Active Substance: METHAMPHETAMINE HYDROCHLORIDE

REACTIONS (5)
  - Depression [None]
  - Fatigue [None]
  - Insomnia [None]
  - Suicidal ideation [None]
  - Confusional state [None]
